FAERS Safety Report 12109021 (Version 1)
Quarter: 2016Q1

REPORT INFORMATION
  Report Type: Spontaneous
  Country: US (occurrence: None)
  Receive Date: 20160222
  Receipt Date: 20160222
  Transmission Date: 20160526
  Serious: No
  Sender: FDA-Public Use
  Company Number: None

PATIENT
  Age: 47 Year

DRUGS (4)
  1. IBRANCE [Suspect]
     Active Substance: PALBOCICLIB
     Indication: BREAST CANCER
     Dosage: ON HOLD
     Route: 048
     Dates: start: 20151201
  2. FEMARA [Concomitant]
     Active Substance: LETROZOLE
  3. VITAMIN E [Concomitant]
     Active Substance: .ALPHA.-TOCOPHEROL
  4. XGEVA [Concomitant]
     Active Substance: DENOSUMAB

REACTIONS (4)
  - Therapy change [None]
  - Therapy cessation [None]
  - White blood cell count decreased [None]
  - Pyrexia [None]

NARRATIVE: CASE EVENT DATE: 20160208
